FAERS Safety Report 4737824-7 (Version None)
Quarter: 2005Q3

REPORT INFORMATION
  Report Type: 
  Country: None (occurrence: None)
  Receive Date: 20050805
  Receipt Date: 20050720
  Transmission Date: 20060218
  Serious: Yes (Hospitalization)
  Sender: FDA-Public Use
  Company Number: 215444

PATIENT
  Age: 29 Year
  Sex: Female

DRUGS (6)
  1. XOLAIR [Suspect]
     Indication: ASTHMA
     Dosage: 2/WEEK, SUBCUTANEOUS
     Route: 058
     Dates: start: 20041106
  2. ANTIBIOTIC (ANTIBIOTICS NOS) [Concomitant]
  3. BRONCHODILATOR (BRONCHODILATOR NOS) [Concomitant]
  4. FORMOTEROL (FORMOTEROL FUMARATE) [Concomitant]
  5. STEROIDS (STEROIDS NOS) [Concomitant]
  6. TIOTROPIUM (TIOTROPIUM BROMIDE) [Concomitant]

REACTIONS (19)
  - ASTHMA [None]
  - CATHETER SITE RELATED REACTION [None]
  - DISEASE RECURRENCE [None]
  - DRUG EFFECT DECREASED [None]
  - DRUG RESISTANCE [None]
  - DRUG SPECIFIC ANTIBODY PRESENT [None]
  - DRY SKIN [None]
  - EOSINOPHILIA [None]
  - HYPOXIA [None]
  - IMPLANT SITE THROMBOSIS [None]
  - INFLUENZA LIKE ILLNESS [None]
  - INSOMNIA [None]
  - NAUSEA [None]
  - RASH PUSTULAR [None]
  - RHINITIS [None]
  - SINUSITIS [None]
  - STAPHYLOCOCCAL INFECTION [None]
  - URTICARIA PHYSICAL [None]
  - URTICARIA THERMAL [None]
